FAERS Safety Report 8222435-1 (Version None)
Quarter: 2012Q1

REPORT INFORMATION
  Report Type: 
  Country: None (occurrence: None)
  Receive Date: 20120320
  Receipt Date: 20120309
  Transmission Date: 20120608
  Serious: Yes (Other)
  Sender: FDA-Public Use
  Company Number: US-ELI_LILLY_AND_COMPANY-US201203002960

PATIENT
  Sex: Male
  Weight: 96 kg

DRUGS (3)
  1. EFFIENT [Suspect]
     Dosage: 10 MG, UNKNOWN
     Dates: start: 20111001, end: 20120201
  2. ANGIOMAX [Concomitant]
     Dosage: UNK, UNKNOWN
  3. ASPIRIN [Concomitant]
     Dosage: UNK, UNKNOWN

REACTIONS (2)
  - GASTROINTESTINAL HAEMORRHAGE [None]
  - POLYP [None]
